FAERS Safety Report 9154166 (Version 1)
Quarter: 2013Q1

REPORT INFORMATION
  Report Type: Report from Study
  Country: DE (occurrence: DE)
  Receive Date: 20130311
  Receipt Date: 20130311
  Transmission Date: 20140127
  Serious: Yes (Hospitalization, Other)
  Sender: FDA-Public Use
  Company Number: DE-GENZYME-CLOF-1002549

PATIENT
  Age: 6 None
  Sex: Male
  Weight: 23.7 kg

DRUGS (12)
  1. EVOLTRA [Suspect]
     Indication: ACUTE MYELOID LEUKAEMIA
     Dosage: 36 MG, QD
     Route: 042
     Dates: start: 20130223
  2. ARA-C [Suspect]
     Indication: ACUTE MYELOID LEUKAEMIA
     Dosage: 1820 MG, QD
     Route: 042
     Dates: start: 20130223
  3. DAUNOXOME [Suspect]
     Indication: ACUTE MYELOID LEUKAEMIA
     Dosage: 55 MG, QD
     Route: 042
     Dates: start: 20130223
  4. AMPHOTERICIN B [Concomitant]
     Indication: PRODUCT USED FOR UNKNOWN INDICATION
     Dosage: 200 MG, QID
     Route: 048
     Dates: start: 20130222
  5. COLISTIN [Concomitant]
     Indication: PRODUCT USED FOR UNKNOWN INDICATION
     Dosage: 47.5 MG, QID
     Route: 048
     Dates: start: 20130222
  6. COTRIM [Concomitant]
     Indication: PRODUCT USED FOR UNKNOWN INDICATION
     Dosage: 60 MG, QID
     Route: 048
     Dates: start: 20130223
  7. FLUCONAZOLE [Concomitant]
     Indication: PRODUCT USED FOR UNKNOWN INDICATION
     Dosage: 200 MG, QD
     Route: 042
     Dates: start: 20130223
  8. NATAMYCIN [Concomitant]
     Indication: PRODUCT USED FOR UNKNOWN INDICATION
     Dosage: 10 MG, QID
     Route: 048
     Dates: start: 20130222
  9. CLEXANE [Concomitant]
     Indication: PRODUCT USED FOR UNKNOWN INDICATION
     Dosage: 20 MG, QD
     Route: 042
     Dates: start: 20130223
  10. ONDANSETRON [Concomitant]
     Indication: PRODUCT USED FOR UNKNOWN INDICATION
     Dosage: 4 MG, BID
     Route: 042
     Dates: start: 20130223
  11. CEFTAZIDIME [Concomitant]
     Indication: INFECTION
     Dosage: 40 MG, TID
     Route: 042
     Dates: start: 20130224
  12. TOBRAMYCIN [Concomitant]
     Indication: INFECTION
     Dosage: 70 MG, QD
     Route: 042
     Dates: start: 20130224

REACTIONS (4)
  - Skin toxicity [Not Recovered/Not Resolved]
  - Leukaemic infiltration [Unknown]
  - Palmar-plantar erythrodysaesthesia syndrome [Not Recovered/Not Resolved]
  - Pyrexia [Not Recovered/Not Resolved]
